FAERS Safety Report 18157705 (Version 2)
Quarter: 2020Q3

REPORT INFORMATION
  Report Type: Spontaneous
  Country: DE (occurrence: DE)
  Receive Date: 20200817
  Receipt Date: 20200824
  Transmission Date: 20201103
  Serious: Yes (Death, Hospitalization, Other)
  Sender: FDA-Public Use
  Company Number: DE-JNJFOC-20200537218

PATIENT
  Age: 88 Year
  Sex: Female

DRUGS (8)
  1. XARELTO [Suspect]
     Active Substance: RIVAROXABAN
     Indication: ANTIPLATELET THERAPY
     Dosage: 10 MG, QD
     Route: 048
     Dates: start: 201712, end: 20200513
  2. CEFURAX [Suspect]
     Active Substance: CEFUROXIME AXETIL
     Indication: SKIN ULCER
  3. CEFURAX [Suspect]
     Active Substance: CEFUROXIME AXETIL
     Indication: PAIN IN EXTREMITY
  4. CEFURAX [Suspect]
     Active Substance: CEFUROXIME AXETIL
     Indication: SKIN ULCER HAEMORRHAGE
  5. XARELTO [Suspect]
     Active Substance: RIVAROXABAN
     Indication: CEREBROVASCULAR ACCIDENT PROPHYLAXIS
  6. CEFURAX [Suspect]
     Active Substance: CEFUROXIME AXETIL
     Indication: PERIPHERAL SWELLING
     Dosage: 500 MG, BID
     Route: 065
     Dates: start: 20200409, end: 20200414
  7. CEFURAX [Suspect]
     Active Substance: CEFUROXIME AXETIL
     Indication: ERYTHEMA
  8. XARELTO [Suspect]
     Active Substance: RIVAROXABAN
     Indication: ATRIAL FIBRILLATION

REACTIONS (9)
  - Loss of consciousness [Unknown]
  - Dyspnoea [Unknown]
  - Exsanguination [Fatal]
  - Skin ulcer haemorrhage [Unknown]
  - Eye haemorrhage [Unknown]
  - Pain in extremity [Unknown]
  - Peripheral swelling [Unknown]
  - Traumatic haemorrhage [Fatal]
  - Erythema [Unknown]

NARRATIVE: CASE EVENT DATE: 202001
